FAERS Safety Report 7013712-0 (Version None)
Quarter: 2010Q3

REPORT INFORMATION
  Report Type: 
  Country: None (occurrence: None)
  Receive Date: 20100924
  Receipt Date: 20100917
  Transmission Date: 20110219
  Serious: Yes (Death)
  Sender: FDA-Public Use
  Company Number: US-TEVA-249073USA

PATIENT
  Sex: Male

DRUGS (2)
  1. ALBUTEROL SULFATE AUTOHALER [Suspect]
     Indication: CHRONIC OBSTRUCTIVE PULMONARY DISEASE
     Dosage: 3-4 TIMES DAILY
     Route: 055
     Dates: end: 20100908
  2. ALBUTEROL SULFATE AUTOHALER [Suspect]
     Indication: LUNG NEOPLASM MALIGNANT

REACTIONS (1)
  - LUNG NEOPLASM MALIGNANT [None]
